FAERS Safety Report 17079761 (Version 1)
Quarter: 2019Q4

REPORT INFORMATION
  Report Type: Spontaneous
  Country: US (occurrence: US)
  Receive Date: 20191029
  Receipt Date: 20191029
  Transmission Date: 20200122
  Serious: Yes (Hospitalization)
  Sender: FDA-Public Use
  Company Number: None

PATIENT
  Age: 64 Year
  Sex: Male
  Weight: 100.7 kg

DRUGS (1)
  1. HEPARIN/SODIUM CHLORIDE [Suspect]
     Active Substance: HEPARIN SODIUM\SODIUM CHLORIDE
     Indication: DEEP VEIN THROMBOSIS
     Dates: start: 20190620, end: 20190703

REACTIONS (2)
  - Thrombocytopenia [None]
  - Thrombosis [None]

NARRATIVE: CASE EVENT DATE: 20190703
